FAERS Safety Report 16341022 (Version 3)
Quarter: 2019Q2

REPORT INFORMATION
  Report Type: Spontaneous
  Country: JP (occurrence: JP)
  Receive Date: 20190522
  Receipt Date: 20190618
  Transmission Date: 20190711
  Serious: Yes (Hospitalization)
  Sender: FDA-Public Use
  Company Number: JP-GLAXOSMITHKLINE-JP2019JPN089540

PATIENT
  Age: 73 Year
  Sex: Female
  Weight: 72 kg

DRUGS (7)
  1. LANSOPRAZOLE-OD TABLETS [Concomitant]
     Indication: PROPHYLAXIS AGAINST GASTROINTESTINAL ULCER
     Dosage: 15 MG, QD (AFTER BREAKFAST)
     Dates: start: 20190222, end: 20190330
  2. SULBACILLIN FOR INJECTION [Concomitant]
     Indication: PNEUMONIA
     Dosage: 9 G, 1D
     Dates: start: 20190403, end: 20190416
  3. SAMTIREL [Suspect]
     Active Substance: ATOVAQUONE
     Indication: PNEUMOCYSTIS JIROVECII PNEUMONIA
     Dosage: 1 DF, BID
     Route: 048
     Dates: start: 20190314, end: 20190403
  4. BAKTAR COMBINATION TABLETS [Concomitant]
     Active Substance: SULFAMETHOXAZOLE\TRIMETHOPRIM
     Dosage: 12 DF, 1D
     Dates: start: 20190218, end: 20190313
  5. PREDNISOLONE TABLETS [Concomitant]
     Active Substance: PREDNISOLONE
     Indication: PNEUMOCYSTIS JIROVECII PNEUMONIA
     Dosage: UNK (15MG/ 15MG/ 10MG), TID
     Dates: start: 20190319, end: 20190418
  6. SAMTIREL [Suspect]
     Active Substance: ATOVAQUONE
     Indication: ANTIFUNGAL PROPHYLAXIS
     Dosage: 1 DF, QD
     Route: 048
     Dates: start: 20190404, end: 20190406
  7. MIYA-BM FINE GRANULES [Concomitant]
     Dosage: 1 G, TID (AFTER EVERY MEAL)

REACTIONS (1)
  - Platelet count decreased [Recovered/Resolved]

NARRATIVE: CASE EVENT DATE: 20190403
